FAERS Safety Report 9083932 (Version 1)
Quarter: 2013Q1

REPORT INFORMATION
  Report Type: Spontaneous
  Country: US (occurrence: US)
  Receive Date: 20130130
  Receipt Date: 20130130
  Transmission Date: 20140127
  Serious: No
  Sender: FDA-Public Use
  Company Number: US-ABBOTT-12P-163-0981228-00

PATIENT
  Sex: Male

DRUGS (2)
  1. HUMIRA [Suspect]
     Indication: PSORIASIS
     Dates: start: 20120816
  2. ALVESCO [Concomitant]
     Indication: LARYNGEAL INFLAMMATION
     Dates: start: 20120816

REACTIONS (2)
  - Upper respiratory tract inflammation [Not Recovered/Not Resolved]
  - Unevaluable event [Not Recovered/Not Resolved]
